FAERS Safety Report 6452809-0 (Version None)
Quarter: 2009Q4

REPORT INFORMATION
  Report Type: 
  Country: None (occurrence: None)
  Receive Date: 20091124
  Receipt Date: 20091117
  Transmission Date: 20100525
  Serious: Yes (Other)
  Sender: FDA-Public Use
  Company Number: BR-PFIZER INC-2009298811

PATIENT
  Sex: Female
  Weight: 58 kg

DRUGS (4)
  1. DEPO-PROVERA [Suspect]
     Indication: OFF LABEL USE
     Dosage: UNK
     Route: 030
     Dates: start: 20080101
  2. DEPO-PROVERA [Suspect]
     Indication: MENSTRUAL DISCOMFORT
  3. DEPO-PROVERA [Suspect]
     Indication: PREMENSTRUAL SYNDROME
  4. BROMOPRIDE [Concomitant]
     Dosage: UNK

REACTIONS (5)
  - AMENORRHOEA [None]
  - CHOLELITHIASIS [None]
  - DYSMENORRHOEA [None]
  - METRORRHAGIA [None]
  - OVARIAN CANCER [None]
